FAERS Safety Report 9840729 (Version 4)
Quarter: 2014Q1

REPORT INFORMATION
  Report Type: Report from Study
  Country: GB (occurrence: GB)
  Receive Date: 20140124
  Receipt Date: 20140220
  Transmission Date: 20141002
  Serious: Yes (Hospitalization, Other)
  Sender: FDA-Public Use
  Company Number: GB-VERTEX PHARMACEUTICALS INC-2014-000186

PATIENT
  Age: 60 Year
  Sex: Female

DRUGS (12)
  1. VX-950 (TELAPREVIR) [Suspect]
     Indication: HEPATITIS C
     Dosage: 1125 MG, BID, TABLET
     Route: 048
     Dates: start: 20140108, end: 20140123
  2. RIBAVIRIN [Suspect]
     Indication: HEPATITIS C
     Dosage: DOSAGE FORM: TABLETS
     Route: 048
     Dates: start: 20140108, end: 20140123
  3. PEGASYS [Suspect]
     Indication: HEPATITIS C
     Dosage: UNK, QW
     Route: 058
     Dates: start: 20140108, end: 20140123
  4. IVABRADINE [Interacting]
     Indication: CARDIAC FAILURE
     Dosage: DOSAGE FORM: UNSPECIFIED
     Route: 065
  5. MIRTAZAPIN [Interacting]
     Indication: PRODUCT USED FOR UNKNOWN INDICATION
     Dosage: UNK
  6. BISOPROLOL [Concomitant]
     Indication: CARDIAC FAILURE
     Dosage: UNK
  7. SPIRONOLACTONE [Concomitant]
     Indication: DIURETIC THERAPY
  8. CANDESARTAN [Concomitant]
     Indication: CARDIAC FAILURE
     Dosage: UNK
  9. BUMETANIDE [Concomitant]
     Indication: CARDIAC FAILURE
     Dosage: UNK
  10. OMEPRAZOLE [Concomitant]
     Indication: ANTIDEPRESSANT THERAPY
     Dosage: UNK
  11. ANASTROZOLE [Concomitant]
     Indication: ANTIDEPRESSANT THERAPY
     Dosage: UNK
  12. DULOXETINE [Concomitant]

REACTIONS (10)
  - Electrocardiogram QT prolonged [Not Recovered/Not Resolved]
  - Abnormal behaviour [Unknown]
  - Dyspnoea [Not Recovered/Not Resolved]
  - Coordination abnormal [Not Recovered/Not Resolved]
  - Drug interaction [Unknown]
  - Amnesia [Not Recovered/Not Resolved]
  - Anxiety [Unknown]
  - Disorientation [Not Recovered/Not Resolved]
  - Confusional state [Not Recovered/Not Resolved]
  - Haemorrhoids [Not Recovered/Not Resolved]
